FAERS Safety Report 9087694 (Version 1)
Quarter: 2013Q1

REPORT INFORMATION
  Report Type: Report from Study
  Country: GB (occurrence: GB)
  Receive Date: 20130201
  Receipt Date: 20130201
  Transmission Date: 20140127
  Serious: Yes (Hospitalization)
  Sender: FDA-Public Use
  Company Number: GB-JNJFOC-20130116819

PATIENT
  Age: 50 Year
  Sex: Male
  Weight: 112.5 kg

DRUGS (9)
  1. REMICADE [Suspect]
     Indication: PSORIASIS
     Route: 042
     Dates: start: 20110607, end: 20120229
  2. AMLODIPINE [Concomitant]
     Dates: start: 20111220, end: 20120527
  3. LISINOPRIL [Concomitant]
     Dates: start: 20120319, end: 20120328
  4. PREDNISOLONE [Concomitant]
     Dates: start: 20120425, end: 20120504
  5. TINZAPARIN [Concomitant]
     Dates: start: 20120420, end: 20120707
  6. ORAMORPH [Concomitant]
     Dates: start: 20120303, end: 20130102
  7. IMMUNOGLOBULINS [Concomitant]
     Dates: start: 20120304
  8. FUMARIC ACID [Concomitant]
     Dosage: FUMARIC ACID ESTERS
     Dates: start: 20120831
  9. DOCUSATE SODIUM [Concomitant]
     Dates: start: 20120427

REACTIONS (4)
  - Demyelinating polyneuropathy [Not Recovered/Not Resolved]
  - Venous thrombosis [Unknown]
  - Sleep apnoea syndrome [Unknown]
  - Psoriasis [Unknown]
